FAERS Safety Report 21944800 (Version 1)
Quarter: 2023Q1

REPORT INFORMATION
  Report Type: Spontaneous
  Country: CN (occurrence: CN)
  Receive Date: 20230202
  Receipt Date: 20230202
  Transmission Date: 20230417
  Serious: Yes (Other)
  Sender: FDA-Public Use
  Company Number: CN-GILEAD-2022-0581662

PATIENT
  Age: 53 Year
  Sex: Male

DRUGS (3)
  1. EPCLUSA [Suspect]
     Active Substance: SOFOSBUVIR\VELPATASVIR
     Indication: Chronic hepatitis C
     Route: 065
  2. EPCLUSA [Suspect]
     Active Substance: SOFOSBUVIR\VELPATASVIR
     Indication: Hepatic cirrhosis
  3. RIBAVIRIN [Concomitant]
     Active Substance: RIBAVIRIN

REACTIONS (3)
  - Hepatic cancer metastatic [Unknown]
  - Drug-induced liver injury [Unknown]
  - Hepatic function abnormal [Recovering/Resolving]
